FAERS Safety Report 4503425-9 (Version None)
Quarter: 2004Q4

REPORT INFORMATION
  Report Type: 
  Country: None (occurrence: None)
  Receive Date: 20041117
  Receipt Date: 20040928
  Transmission Date: 20050328
  Serious: Yes (Hospitalization, Other)
  Sender: FDA-Public Use
  Company Number: PHEH2004US10637

PATIENT
  Age: 68 Year
  Sex: Female

DRUGS (16)
  1. ZOMETA [Suspect]
     Indication: METASTASES TO BONE
     Dosage: UNK, UNK
     Dates: start: 20020301, end: 20040520
  2. TAXOTERE [Concomitant]
     Dosage: 146 MG Q3W
     Dates: start: 20030203, end: 20031215
  3. DURAGESIC [Concomitant]
     Dosage: 350 MEQ /H
  4. VICODIN [Concomitant]
     Dosage: BID
  5. DOXIL [Concomitant]
     Dosage: 73
     Dates: start: 20040719
  6. FASLODEX [Concomitant]
     Dates: start: 20020913, end: 20030113
  7. DECADRON [Concomitant]
  8. KYTRIL [Concomitant]
  9. EPOGEN [Concomitant]
  10. CLONAZEPAM [Concomitant]
     Dosage: .5 MG, QD
  11. DIAZEPAM [Concomitant]
     Dosage: 5-10MG Q6H
  12. REQUIP [Concomitant]
     Dosage: 1 MG, TID
  13. TRAZODONE HCL [Concomitant]
     Dosage: 50 MG, QD
  14. PROCHLORPERAZINE [Concomitant]
     Dosage: 10 MG, Q6H
  15. LORAZEPAM [Concomitant]
  16. ZOFRAN [Concomitant]

REACTIONS (13)
  - ASEPTIC NECROSIS BONE [None]
  - BONE DEBRIDEMENT [None]
  - DENTAL CARIES [None]
  - JAW FRACTURE [None]
  - METASTASES TO BONE [None]
  - OSTEOMYELITIS CHRONIC [None]
  - OSTEONECROSIS [None]
  - PAIN IN JAW [None]
  - RESTLESS LEGS SYNDROME [None]
  - SEQUESTRECTOMY [None]
  - SPINAL COLUMN STENOSIS [None]
  - SWELLING [None]
  - TOOTH EXTRACTION [None]
